FAERS Safety Report 5639438-3 (Version None)
Quarter: 2008Q1

REPORT INFORMATION
  Report Type: 
  Country: None (occurrence: None)
  Receive Date: 20080222
  Receipt Date: 20080219
  Transmission Date: 20080703
  Serious: Yes (Hospitalization, Other)
  Sender: FDA-Public Use
  Company Number: 163-21880-08020899

PATIENT
  Age: 75 Year
  Sex: Female

DRUGS (3)
  1. REVLIMID [Suspect]
     Indication: B-CELL LYMPHOMA
     Dosage: 5 MG, 1 IN 1 D, ORAL; 20 MG, 2 IN 1 D, ORAL
     Route: 048
     Dates: start: 20080122, end: 20080213
  2. REVLIMID [Suspect]
     Indication: B-CELL LYMPHOMA
     Dosage: 5 MG, 1 IN 1 D, ORAL; 20 MG, 2 IN 1 D, ORAL
     Route: 048
     Dates: start: 20080122, end: 20080213
  3. PREDNISONE TAB [Suspect]
     Indication: DRUG USE FOR UNKNOWN INDICATION

REACTIONS (9)
  - DEAFNESS UNILATERAL [None]
  - EAR PAIN [None]
  - GLOSSODYNIA [None]
  - LYMPHADENOPATHY [None]
  - OEDEMA MOUTH [None]
  - ORAL PAIN [None]
  - SKIN EXFOLIATION [None]
  - SWOLLEN TONGUE [None]
  - WHITE BLOOD CELL COUNT DECREASED [None]
